FAERS Safety Report 5468597-0 (Version None)
Quarter: 2007Q3

REPORT INFORMATION
  Report Type: 
  Country: None (occurrence: None)
  Receive Date: 20070926
  Receipt Date: 20070914
  Transmission Date: 20080115
  Serious: Yes (Other)
  Sender: FDA-Public Use
  Company Number: JP-ROCHE-490508

PATIENT
  Age: 10 Year
  Sex: Male
  Weight: 47 kg

DRUGS (9)
  1. TAMIFLU [Suspect]
     Route: 048
     Dates: start: 20070313, end: 20070313
  2. TAMIFLU [Suspect]
     Route: 048
     Dates: start: 20070314, end: 20070315
  3. TAMIFLU [Suspect]
     Route: 048
     Dates: start: 20070316, end: 20070316
  4. ASVERIN [Concomitant]
     Route: 048
     Dates: start: 20070314, end: 20070320
  5. MUCOSAL [Concomitant]
     Route: 048
     Dates: start: 20070314, end: 20070320
  6. POLARAMINE [Concomitant]
     Route: 048
     Dates: start: 20070314, end: 20070320
  7. DOMPERIDONE [Concomitant]
     Route: 048
     Dates: start: 20070314, end: 20070317
  8. ATMIPHEN [Concomitant]
     Route: 048
     Dates: start: 20070313, end: 20070313
  9. ATMIPHEN [Concomitant]
     Route: 048
     Dates: start: 20070314, end: 20070315

REACTIONS (5)
  - ABNORMAL BEHAVIOUR [None]
  - ANOREXIA [None]
  - CRYING [None]
  - FEAR [None]
  - PSYCHIATRIC SYMPTOM [None]
